FAERS Safety Report 4630945-9 (Version None)
Quarter: 2005Q2

REPORT INFORMATION
  Report Type: 
  Country: None (occurrence: None)
  Receive Date: 20050408
  Receipt Date: 20050318
  Transmission Date: 20051028
  Serious: Yes (Other)
  Sender: FDA-Public Use
  Company Number: JP-BRISTOL-MYERS SQUIBB COMPANY-12905675

PATIENT
  Age: 78 Year
  Sex: Female

DRUGS (3)
  1. MAXIPIME [Suspect]
     Indication: PNEUMONIA
     Route: 041
     Dates: start: 20050221, end: 20050225
  2. AMINOPHYLLINE [Concomitant]
     Dosage: THERAPY DATES: 21-FEB-2005 TO 25-FEB-2005; RESTARTED ON 28-MAR-2005 TO 28-MAR-2005.
     Route: 042
     Dates: start: 20050221, end: 20050328
  3. KLARICID [Concomitant]
     Route: 048

REACTIONS (6)
  - ALANINE AMINOTRANSFERASE INCREASED [None]
  - ASPARTATE AMINOTRANSFERASE INCREASED [None]
  - BLOOD ALKALINE PHOSPHATASE INCREASED [None]
  - BLOOD LACTATE DEHYDROGENASE INCREASED [None]
  - GAMMA-GLUTAMYLTRANSFERASE INCREASED [None]
  - HEPATIC FUNCTION ABNORMAL [None]
